FAERS Safety Report 4621181-0 (Version None)
Quarter: 2005Q1

REPORT INFORMATION
  Report Type: 
  Country: None (occurrence: None)
  Receive Date: 20050328
  Receipt Date: 20050315
  Transmission Date: 20050727
  Serious: Yes (Other)
  Sender: FDA-Public Use
  Company Number: 2005014276

PATIENT
  Sex: Female
  Weight: 3.67 kg

DRUGS (9)
  1. SPIRONOLACTONE [Suspect]
     Indication: GITELMAN'S SYNDROME
     Dosage: 200 MG (200 MG, DAILY INTERVAL: EVERY DAY), PLACENTAL
     Route: 064
     Dates: start: 20040101, end: 20040101
  2. PROSTIN E2 [Suspect]
     Indication: PREMATURE LABOUR
     Dosage: 5 MG, PLACENTAL
     Route: 064
     Dates: start: 20050311, end: 20050311
  3. OXYTOCIN 10 USP UNITS IN DEXTROSE 5% [Suspect]
     Indication: PREMATURE LABOUR
     Dosage: PLACENTAL
     Route: 064
     Dates: start: 20050311, end: 20050311
  4. ETHANOL (ETHANOL) [Concomitant]
  5. MAGNESIUM (MAGNESIUM) [Concomitant]
  6. POTASSIUM CHLORIDE [Concomitant]
  7. FERROUS SULFATE TAB [Concomitant]
  8. MULTIVITAMINS (ASCORBIC ACID, ERGOCALCIFEROL, FOLIC ACID, NICOTINAMIDE [Concomitant]
  9. FOLIC ACID [Concomitant]

REACTIONS (7)
  - APGAR SCORE LOW [None]
  - BLOOD PH DECREASED [None]
  - CAESAREAN SECTION [None]
  - DRUG EXPOSURE DURING PREGNANCY [None]
  - FOETAL DISORDER [None]
  - FOETAL DISTRESS SYNDROME [None]
  - TACHYCARDIA FOETAL [None]
